FAERS Safety Report 9705579 (Version 1)
Quarter: 2013Q4

REPORT INFORMATION
  Report Type: Spontaneous
  Country: US (occurrence: US)
  Receive Date: 20131122
  Receipt Date: 20131122
  Transmission Date: 20140711
  Serious: No
  Sender: FDA-Public Use
  Company Number: US-GILEAD-2008-0016963

PATIENT
  Sex: Female
  Weight: 68.95 kg

DRUGS (18)
  1. LETAIRIS [Suspect]
     Indication: PULMONARY ARTERIAL HYPERTENSION
     Route: 048
     Dates: start: 20080602
  2. COREG [Concomitant]
     Route: 048
  3. CALCITROL [Concomitant]
     Route: 048
  4. LASIX [Concomitant]
     Route: 048
  5. TRAVATAN [Concomitant]
     Dosage: AS DIRECTED
     Route: 047
  6. REVATIO [Concomitant]
     Route: 048
  7. SIMVASTATIN [Concomitant]
     Route: 048
  8. PREVACID [Concomitant]
     Route: 048
  9. ALLOPURINOL [Concomitant]
     Route: 048
  10. FLUOXETINE [Concomitant]
     Route: 048
  11. CORDARONE [Concomitant]
     Route: 048
  12. COUMADIN [Concomitant]
     Route: 048
  13. DILTIAZEM [Concomitant]
     Route: 048
  14. GLIPIZIDE [Concomitant]
     Route: 048
  15. MULTIVITAMIN [Concomitant]
     Route: 048
  16. LOTENSIN [Concomitant]
     Route: 048
  17. WELLBUTRIN [Concomitant]
     Route: 048
  18. FOLIC ACID [Concomitant]
     Route: 048

REACTIONS (2)
  - Dyspnoea [Unknown]
  - Swelling [Unknown]
